FAERS Safety Report 7829611-8 (Version None)
Quarter: 2011Q4

REPORT INFORMATION
  Report Type: 
  Country: None (occurrence: None)
  Receive Date: 20111021
  Receipt Date: 20111010
  Transmission Date: 20120403
  Serious: Yes (Other)
  Sender: FDA-Public Use
  Company Number: FR-AMGEN-FRASP2011032759

PATIENT
  Age: 42 Year
  Sex: Female
  Weight: 82 kg

DRUGS (5)
  1. LAMALINE                           /00764901/ [Concomitant]
     Indication: PAIN
     Dosage: 2 TO 6 CAPSULES A DAY
     Route: 048
     Dates: start: 20100701
  2. ENBREL [Suspect]
     Indication: ANKYLOSING SPONDYLITIS
     Dosage: 50 MG, WEEKLY
     Route: 058
     Dates: start: 20090801, end: 20110701
  3. NEXIUM [Concomitant]
     Indication: ABDOMINAL PAIN UPPER
     Dosage: 40 MG, 1X/DAY
     Route: 048
     Dates: start: 20080701
  4. MYOLASTAN [Concomitant]
     Indication: PAIN
     Dosage: 1 DF A DAY
     Route: 048
     Dates: start: 20110201
  5. CELEBREX [Concomitant]
     Indication: INFLAMMATION
     Dosage: 200 MG, 1X/DAY
     Route: 048
     Dates: start: 20080901

REACTIONS (3)
  - CERVICAL DYSPLASIA [None]
  - DRUG INEFFECTIVE [None]
  - CERVICITIS HUMAN PAPILLOMA VIRUS [None]
